FAERS Safety Report 10936571 (Version 1)
Quarter: 2015Q1

REPORT INFORMATION
  Report Type: Spontaneous
  Country: US (occurrence: None)
  Receive Date: 20150129
  Receipt Date: 20150129
  Transmission Date: 20150721
  Serious: No
  Sender: FDA-Public Use
  Company Number: A-NJ2014-107010

PATIENT
  Age: 56 Year
  Sex: Female

DRUGS (2)
  1. SILDENAFIL (SILDENAFIL CITRATE) [Suspect]
     Active Substance: SILDENAFIL CITRATE
     Indication: PRODUCT USED FOR UNKNOWN INDICATION
  2. OPSUMIT [Suspect]
     Active Substance: MACITENTAN
     Indication: PULMONARY ARTERIAL HYPERTENSION
     Route: 048
     Dates: start: 20140506

REACTIONS (2)
  - Swelling face [None]
  - Malaise [None]
